FAERS Safety Report 14069128 (Version 1)
Quarter: 2017Q4

REPORT INFORMATION
  Report Type: Spontaneous
  Country: US (occurrence: US)
  Receive Date: 20171010
  Receipt Date: 20171010
  Transmission Date: 20180321
  Serious: No
  Sender: FDA-Public Use
  Company Number: US-009507513-1709USA011191

PATIENT
  Age: 24 Year
  Sex: Female
  Weight: 97.05 kg

DRUGS (1)
  1. NEXPLANON [Suspect]
     Active Substance: ETONOGESTREL
     Indication: CONTRACEPTION
     Dosage: 1 DF, 3 YEARS IMPLANT
     Route: 059

REACTIONS (7)
  - Vomiting [Unknown]
  - Pain [Unknown]
  - Malaise [Unknown]
  - Dizziness [Unknown]
  - Feeling abnormal [Unknown]
  - Mood swings [Unknown]
  - Menorrhagia [Unknown]

NARRATIVE: CASE EVENT DATE: 201701
